FAERS Safety Report 6116708-6 (Version None)
Quarter: 2009Q1

REPORT INFORMATION
  Report Type: 
  Country: None (occurrence: None)
  Receive Date: 20090314
  Receipt Date: 20081223
  Transmission Date: 20090719
  Serious: No
  Sender: FDA-Public Use
  Company Number: US-ABBOTT-08P-163-0494833-00

PATIENT
  Sex: Female
  Weight: 135.29 kg

DRUGS (11)
  1. HUMIRA [Suspect]
     Indication: CROHN'S DISEASE
     Dosage: 3 OUT OF 4 INJECTIONS GIVEN FROM INITIAL DOSE PACK
     Route: 058
     Dates: start: 20081223
  2. PROTONIX [Concomitant]
     Indication: CROHN'S DISEASE
     Route: 048
  3. PROTONIX [Concomitant]
     Indication: GASTRIC DISORDER
  4. SYNTHROID [Concomitant]
     Indication: HYPOTHYROIDISM
     Route: 048
  5. WELLBUTRIN [Concomitant]
     Indication: DRUG USE FOR UNKNOWN INDICATION
     Route: 048
  6. ASACOL [Concomitant]
     Indication: DRUG USE FOR UNKNOWN INDICATION
     Route: 048
  7. NORTRIPTYLINE HCL [Concomitant]
     Indication: DRUG USE FOR UNKNOWN INDICATION
  8. DEPO-PROVERA [Concomitant]
     Indication: DRUG USE FOR UNKNOWN INDICATION
  9. FLUOXETINE [Concomitant]
     Indication: DRUG USE FOR UNKNOWN INDICATION
  10. PERCOCET [Concomitant]
     Indication: PAIN
  11. MERCAPTOPURINE [Concomitant]
     Indication: CROHN'S DISEASE

REACTIONS (6)
  - ABDOMINAL TENDERNESS [None]
  - DIZZINESS [None]
  - HYPERHIDROSIS [None]
  - INJECTION SITE SWELLING [None]
  - MUSCLE SPASMS [None]
  - NAUSEA [None]
